FAERS Safety Report 8018077-3 (Version None)
Quarter: 2012Q1

REPORT INFORMATION
  Report Type: 
  Country: None (occurrence: None)
  Receive Date: 20120103
  Receipt Date: 20111221
  Transmission Date: 20120608
  Serious: Yes (Other)
  Sender: FDA-Public Use
  Company Number: US-CELGENEUS-163-21880-11051744

PATIENT
  Sex: Female
  Weight: 86.8 kg

DRUGS (14)
  1. REVLIMID [Suspect]
     Dosage: 25 MILLIGRAM
     Route: 048
     Dates: start: 20090609
  2. CYANOCOBALAMIN [Concomitant]
     Dosage: 1000 MICROGRAM
     Route: 058
  3. INSULIN [Concomitant]
     Dosage: SLIDING SCALE
     Route: 065
  4. DEXAMETHASONE [Concomitant]
     Dosage: 20 MILLIGRAM
     Route: 048
  5. ATENOLOL [Concomitant]
     Dosage: 50 MILLIGRAM
     Route: 048
  6. DIFLUCAN [Concomitant]
     Dosage: 100 MILLIGRAM
     Route: 048
  7. ANUSOL HC [Concomitant]
     Route: 054
  8. DARVOCET-N 100 [Concomitant]
     Indication: PAIN
     Dosage: 100-650MG
     Route: 048
  9. VOLTAREN [Concomitant]
     Indication: PAIN
     Dosage: APPLY 1 INCH BID
     Route: 061
  10. LORAZEPAM [Concomitant]
     Dosage: 1 MILLIGRAM
     Route: 048
  11. METFORMIN HCL [Concomitant]
     Dosage: 500 MILLIGRAM
     Route: 048
  12. MICARDIS HCT [Concomitant]
     Dosage: 40-12.5MG
     Route: 048
  13. LEVOTHROID [Concomitant]
     Dosage: 100 MICROGRAM
     Route: 048
  14. MELPHALAN HYDROCHLORIDE [Concomitant]
     Dosage: 8 MILLIGRAM
     Route: 048

REACTIONS (3)
  - ATRIAL FIBRILLATION [None]
  - WHITE BLOOD CELL COUNT DECREASED [None]
  - CARDIAC DISORDER [None]
